FAERS Safety Report 14342230 (Version 1)
Quarter: 2018Q1

REPORT INFORMATION
  Report Type: Spontaneous
  Country: US (occurrence: US)
  Receive Date: 20180102
  Receipt Date: 20180102
  Transmission Date: 20180509
  Serious: Yes (Hospitalization, Other)
  Sender: FDA-Public Use
  Company Number: US-TEVA-2017-US-837926

PATIENT
  Sex: Female
  Weight: 54 kg

DRUGS (3)
  1. PREDNISONE. [Concomitant]
     Active Substance: PREDNISONE
     Indication: BREAST CANCER STAGE IV
     Dosage: 1200 MICROGRAM DAILY;
  2. ACTIQ [Suspect]
     Active Substance: FENTANYL CITRATE
     Indication: BREAST CANCER STAGE IV
     Route: 065
     Dates: start: 2002
  3. XANAX [Concomitant]
     Active Substance: ALPRAZOLAM
     Indication: ANXIETY

REACTIONS (12)
  - Pyrexia [Unknown]
  - Chest pain [Not Recovered/Not Resolved]
  - Nausea [Unknown]
  - Myocardial infarction [Unknown]
  - Hepatic neoplasm [Unknown]
  - Facial paralysis [Unknown]
  - Bone cancer [Unknown]
  - Nerve compression [Unknown]
  - Stomatitis [Not Recovered/Not Resolved]
  - Pneumonia [Unknown]
  - Gallbladder cancer [Unknown]
  - Abdominal pain [Not Recovered/Not Resolved]

NARRATIVE: CASE EVENT DATE: 2017
